FAERS Safety Report 6552750-9 (Version None)
Quarter: 2010Q1

REPORT INFORMATION
  Report Type: 
  Country: None (occurrence: None)
  Receive Date: 20100126
  Receipt Date: 20100120
  Transmission Date: 20100710
  Serious: Yes (Hospitalization)
  Sender: FDA-Public Use
  Company Number: PHEH2009US13904

PATIENT
  Sex: Male

DRUGS (9)
  1. NEORAL [Suspect]
     Dosage: UNK, UNK
     Dates: end: 20090715
  2. NEORAL [Suspect]
     Dosage: UNK
     Dates: start: 20090802
  3. CELLCEPT [Suspect]
     Dosage: UNK, UNK
     Dates: end: 20090715
  4. CELLCEPT [Suspect]
     Dosage: UNK
     Dates: start: 20090802
  5. NIFEDIPINE [Concomitant]
     Dosage: UNK, UNK
  6. CRESTOR [Concomitant]
     Dosage: UNK, UNK
  7. PREDNISONE [Concomitant]
     Dosage: UNK, UNK
  8. STARLIX [Concomitant]
     Dosage: UNK, UNK
  9. BABY ASPIRIN [Concomitant]
     Dosage: UNK, UNK

REACTIONS (2)
  - ARTERIAL OCCLUSIVE DISEASE [None]
  - CARDIAC FAILURE CONGESTIVE [None]
